FAERS Safety Report 4400141-9 (Version None)
Quarter: 2004Q3

REPORT INFORMATION
  Report Type: 
  Country: None (occurrence: None)
  Receive Date: 20040716
  Receipt Date: 20040623
  Transmission Date: 20050211
  Serious: Yes (Hospitalization, Other)
  Sender: FDA-Public Use
  Company Number: US_0406103506

PATIENT
  Age: 75 Year
  Sex: Female
  Weight: 70 kg

DRUGS (8)
  1. EVISTA [Suspect]
     Indication: OSTEOPOROSIS
     Dosage: 60 MG/1 DAY
     Dates: start: 20040503
  2. FOSAMAX [Concomitant]
  3. CRESTOR (ROSUVASTATIN CALCIUM) [Concomitant]
  4. ACETYLSALICYLIC ACID SRT [Concomitant]
  5. PLAVIX [Concomitant]
  6. DARVOCET-N 100 [Concomitant]
  7. PROTONIX [Concomitant]
  8. EFFEXOR [Concomitant]

REACTIONS (2)
  - FALL [None]
  - HIP FRACTURE [None]
